FAERS Safety Report 11225751 (Version 2)
Quarter: 2015Q3

REPORT INFORMATION
  Report Type: Spontaneous
  Country: NL (occurrence: NL)
  Receive Date: 20150629
  Receipt Date: 20150715
  Transmission Date: 20151125
  Serious: Yes (Hospitalization)
  Sender: FDA-Public Use
  Company Number: NL-BAYER-2015-362146

PATIENT
  Age: 60 Year
  Sex: Male

DRUGS (5)
  1. XOFIGO [Suspect]
     Active Substance: RADIUM RA-223 DICHLORIDE
     Indication: ARTHRALGIA
     Dosage: 3RD RADIUM ADMINISTRATION
     Dates: start: 20150310
  2. XOFIGO [Suspect]
     Active Substance: RADIUM RA-223 DICHLORIDE
     Indication: DISEASE PROGRESSION
     Dosage: 4TH RADIUM ADMINISTRATION
     Dates: start: 20150410
  3. XOFIGO [Suspect]
     Active Substance: RADIUM RA-223 DICHLORIDE
     Indication: DISEASE PROGRESSION
     Dosage: 1ST RADIUM ADMINISTRATION
     Dates: start: 20150113
  4. XOFIGO [Suspect]
     Active Substance: RADIUM RA-223 DICHLORIDE
     Indication: BLOOD ALKALINE PHOSPHATASE INCREASED
     Dosage: 2ND RADIUM ADMINISTRATION
     Dates: start: 20150210
  5. XOFIGO [Suspect]
     Active Substance: RADIUM RA-223 DICHLORIDE
     Indication: DISEASE PROGRESSION
     Dosage: 5TH RADIUM ADMINISTRATION
     Dates: start: 20150519

REACTIONS (5)
  - White blood cell count decreased [None]
  - Platelet count decreased [None]
  - Neutrophil count decreased [None]
  - Bone marrow toxicity [None]
  - Haemoglobin decreased [None]

NARRATIVE: CASE EVENT DATE: 20150609
